FAERS Safety Report 18366563 (Version 1)
Quarter: 2020Q4

REPORT INFORMATION
  Report Type: Spontaneous
  Country: CN (occurrence: CN)
  Receive Date: 20201009
  Receipt Date: 20201009
  Transmission Date: 20210114
  Serious: Yes (Other)
  Sender: FDA-Public Use
  Company Number: CN-009507513-2010CHN001307

PATIENT
  Age: 90 Year
  Sex: Male

DRUGS (3)
  1. BIAPENEM [Suspect]
     Active Substance: BIAPENEM
     Indication: ANTI-INFECTIVE THERAPY
     Dosage: 0.3G Q6, IVGTT
     Route: 041
     Dates: start: 20200914, end: 20200918
  2. SODIUM CHLORIDE. [Concomitant]
     Active Substance: SODIUM CHLORIDE
     Dosage: 100ML IVGTT Q8 H
     Route: 041
     Dates: start: 20200918
  3. TIENAM [Suspect]
     Active Substance: CILASTATIN SODIUM\IMIPENEM
     Indication: ANTI-INFECTIVE THERAPY
     Dosage: 1G IVGTT
     Route: 041
     Dates: start: 20200918, end: 20200927

REACTIONS (2)
  - Drug ineffective [Unknown]
  - Drug-induced liver injury [Unknown]

NARRATIVE: CASE EVENT DATE: 20200918
